FAERS Safety Report 20885126 (Version 1)
Quarter: 2022Q2

REPORT INFORMATION
  Report Type: Other
  Country: None (occurrence: FR)
  Receive Date: 20220527
  Receipt Date: 20220527
  Transmission Date: 20220721
  Serious: Yes (Other)
  Sender: FDA-Public Use
  Company Number: FR-Air Products and Chemicals, Inc. -2129275

PATIENT
  Age: 66 Year
  Sex: Male

DRUGS (1)
  1. OXYGEN [Suspect]
     Active Substance: OXYGEN
     Route: 045
     Dates: start: 20190419

REACTIONS (2)
  - Wrong technique in product usage process [None]
  - Medical device site burn [None]
